FAERS Safety Report 24455075 (Version 2)
Quarter: 2024Q4

REPORT INFORMATION
  Report Type: Spontaneous
  Country: ZA (occurrence: ZA)
  Receive Date: 20241017
  Receipt Date: 20241018
  Transmission Date: 20250115
  Serious: No
  Sender: ROCHE
  Company Number: ZA-ROCHE-3476772

PATIENT
  Sex: Female

DRUGS (6)
  1. RITUXIMAB [Suspect]
     Active Substance: RITUXIMAB
     Indication: Product used for unknown indication
     Dosage: EVERY 6 MONTHS FROM AUG-2022 TO FEB-2023.
     Route: 041
     Dates: start: 202208, end: 202302
  2. LEFLUNOMIDE [Suspect]
     Active Substance: LEFLUNOMIDE
     Indication: Product used for unknown indication
     Route: 065
     Dates: start: 202108
  3. SALAZOPYRINE [Suspect]
     Active Substance: SULFASALAZINE
     Indication: Product used for unknown indication
     Dosage: 500MG 2X/DAY
     Route: 065
     Dates: start: 202106, end: 202108
  4. METHOTREXATE [Suspect]
     Active Substance: METHOTREXATE
     Indication: Product used for unknown indication
     Dosage: 20MG WEEKLY
     Route: 065
     Dates: start: 202104, end: 202201
  5. CHLOROQUINE SULFATE [Suspect]
     Active Substance: CHLOROQUINE SULFATE
     Indication: Product used for unknown indication
     Dosage: 200MG
     Route: 065
     Dates: start: 202103
  6. CYCLOSPORINE [Concomitant]
     Active Substance: CYCLOSPORINE
     Indication: Product used for unknown indication
     Dosage: 75MG 2X/DAY
     Route: 065
     Dates: start: 202201, end: 202207

REACTIONS (2)
  - Drug ineffective [Unknown]
  - No adverse event [Unknown]
